FAERS Safety Report 4338698-9 (Version None)
Quarter: 2004Q2

REPORT INFORMATION
  Report Type: 
  Country: None (occurrence: None)
  Receive Date: 20040414
  Receipt Date: 20040402
  Transmission Date: 20050107
  Serious: Yes (Death, Other)
  Sender: FDA-Public Use
  Company Number: BE-BRISTOL-MYERS SQUIBB COMPANY-12549697

PATIENT
  Age: 85 Year
  Sex: Female

DRUGS (1)
  1. CEFEPIME FOR INJ [Suspect]
     Indication: LUNG INFECTION
     Dosage: DOSE DECREASED TO 1G THREE TIMES DAILY ON 17-MAR-2004.
     Route: 042
     Dates: start: 20040311, end: 20040324

REACTIONS (4)
  - COMA [None]
  - EPILEPSY [None]
  - LUNG INFECTION [None]
  - MYOCLONUS [None]
